FAERS Safety Report 6939051-1 (Version None)
Quarter: 2010Q3

REPORT INFORMATION
  Report Type: 
  Country: None (occurrence: None)
  Receive Date: 20100824
  Receipt Date: 20100819
  Transmission Date: 20110219
  Serious: Yes (Death, Life-Threatening)
  Sender: FDA-Public Use
  Company Number: FR-MERCK-1008FRA00062

PATIENT
  Age: 53 Year
  Sex: Male

DRUGS (10)
  1. ISENTRESS [Suspect]
     Indication: HIV INFECTION
     Route: 048
     Dates: start: 20100129, end: 20100304
  2. EFAVIRENZ [Suspect]
     Indication: HIV INFECTION
     Route: 048
     Dates: start: 20040101
  3. FOSAMPRENAVIR CALCIUM [Suspect]
     Indication: HIV INFECTION
     Route: 048
     Dates: start: 20040101
  4. RITONAVIR [Suspect]
     Indication: HIV INFECTION
     Route: 048
     Dates: start: 20040101
  5. GLYBURIDE AND METFORMIN HYDROCHLORIDE [Suspect]
     Indication: TYPE 2 DIABETES MELLITUS
     Route: 048
     Dates: start: 20050101
  6. SILDENAFIL CITRATE [Suspect]
     Indication: PULMONARY HYPERTENSION
     Route: 065
     Dates: start: 20090701
  7. VENLAFAXINE HYDROCHLORIDE [Concomitant]
     Indication: DEPRESSION
     Route: 048
  8. RISPERIDONE [Concomitant]
     Indication: DEPRESSION
     Route: 048
  9. ACEPROMETAZINE MALEATE AND MEPROBAMATE [Concomitant]
     Indication: DEPRESSION
     Route: 048
  10. ALPRAZOLAM [Concomitant]
     Indication: DEPRESSION
     Route: 048

REACTIONS (2)
  - HYPERLACTACIDAEMIA [None]
  - METABOLIC ACIDOSIS [None]
